FAERS Safety Report 14610200 (Version 5)
Quarter: 2018Q2

REPORT INFORMATION
  Report Type: Spontaneous
  Country: GB (occurrence: GB)
  Receive Date: 20180307
  Receipt Date: 20180611
  Transmission Date: 20180711
  Serious: Yes (Hospitalization)
  Sender: FDA-Public Use
  Company Number: GB-VERTEX PHARMACEUTICALS-2018-001615

PATIENT
  Age: 37 Year
  Sex: Male

DRUGS (22)
  1. CREON 40000 [Concomitant]
  2. DEOXYRIBONUCLEASE, NATURAL [Concomitant]
     Dosage: 2.5 MG
  3. LAXIDO [Concomitant]
     Active Substance: POLYETHYLENE GLYCOL 3350\POTASSIUM CHLORIDE\SODIUM BICARBONATE\SODIUM CHLORIDE
  4. TIOTROPIUM [Concomitant]
     Active Substance: TIOTROPIUM
  5. SLOW SODIUM [Concomitant]
  6. POSACONAZOLE [Concomitant]
     Active Substance: POSACONAZOLE
  7. VITAMIN A+D                        /00098401/ [Concomitant]
  8. MENADIOL [Concomitant]
     Active Substance: MENADIOL
  9. NEBUSAL [Concomitant]
     Active Substance: SODIUM CHLORIDE
  10. CHOLECALCIFEROL [Concomitant]
     Active Substance: CHOLECALCIFEROL
  11. FERROUS SULFATE. [Concomitant]
     Active Substance: FERROUS SULFATE
  12. ORKAMBI [Suspect]
     Active Substance: IVACAFTOR\LUMACAFTOR
     Indication: CYSTIC FIBROSIS
     Dosage: 400/250 MG, BID
     Route: 048
     Dates: start: 20160922
  13. VITAE [Concomitant]
  14. COLOMYCIN                          /00013203/ [Concomitant]
     Active Substance: COLISTIN
     Dosage: 2 MEGA-INTERNATIONAL UNIT
     Route: 055
  15. SALBUTAMOL [Concomitant]
     Active Substance: ALBUTEROL
     Route: 055
  16. TRANEXAMIC ACID. [Concomitant]
     Active Substance: TRANEXAMIC ACID
  17. AZITHROMYCIN ANHYDROUS. [Concomitant]
     Active Substance: AZITHROMYCIN ANHYDROUS
  18. SERETIDE [Concomitant]
     Active Substance: FLUTICASONE PROPIONATE\SALMETEROL XINAFOATE
  19. CEFTAZIDIME. [Concomitant]
     Active Substance: CEFTAZIDIME
     Route: 055
  20. CARBOCYSTEINE [Concomitant]
     Active Substance: CARBOCYSTEINE
  21. URSODEOXYCHOLIC ACID [Concomitant]
     Active Substance: URSODIOL
  22. UNIPHYLLIN [Concomitant]
     Active Substance: THEOPHYLLINE ANHYDROUS

REACTIONS (1)
  - Infective pulmonary exacerbation of cystic fibrosis [Recovering/Resolving]

NARRATIVE: CASE EVENT DATE: 20180217
